FAERS Safety Report 4863881-3 (Version None)
Quarter: 2005Q4

REPORT INFORMATION
  Report Type: 
  Country: None (occurrence: None)
  Receive Date: 20051219
  Receipt Date: 20051205
  Transmission Date: 20060501
  Serious: Yes (Disabling, Other)
  Sender: FDA-Public Use
  Company Number: 05-0154PO

PATIENT
  Age: 9 Year
  Sex: Female

DRUGS (1)
  1. PONTAL (MEFENAMIC ACID) SYRUP [Suspect]
     Dates: start: 19950501

REACTIONS (3)
  - OCULOMUCOCUTANEOUS SYNDROME [None]
  - RESPIRATORY DISORDER [None]
  - STEVENS-JOHNSON SYNDROME [None]
